FAERS Safety Report 13483819 (Version 1)
Quarter: 2017Q2

REPORT INFORMATION
  Report Type: Spontaneous
  Country: US (occurrence: US)
  Receive Date: 20170426
  Receipt Date: 20170426
  Transmission Date: 20170830
  Serious: No
  Sender: FDA-Public Use
  Company Number: US-BAYER-2017-079163

PATIENT
  Age: 70 Year
  Sex: Male
  Weight: 69.98 kg

DRUGS (2)
  1. VITAMIN D [Concomitant]
     Active Substance: CHOLECALCIFEROL
     Dosage: UNK
  2. MIRALAX [Suspect]
     Active Substance: POLYETHYLENE GLYCOL 3350
     Indication: GASTROINTESTINAL DISORDER
     Dosage: 1 DF, PRN
     Route: 048
     Dates: start: 20170421, end: 20170424

REACTIONS (3)
  - Flatulence [Not Recovered/Not Resolved]
  - Constipation [Unknown]
  - Faeces soft [Unknown]

NARRATIVE: CASE EVENT DATE: 20170421
